FAERS Safety Report 19109505 (Version 1)
Quarter: 2021Q2

REPORT INFORMATION
  Report Type: Spontaneous
  Country: UA (occurrence: UA)
  Receive Date: 20210409
  Receipt Date: 20210409
  Transmission Date: 20210717
  Serious: Yes (Other)
  Sender: FDA-Public Use
  Company Number: UA-TEVA-2021-UA-1899409

PATIENT
  Age: 57 Year
  Sex: Male

DRUGS (2)
  1. OLFEN [DICLOFENAC] [Suspect]
     Active Substance: DICLOFENAC
     Indication: FRACTURE
     Dosage: 2 DOSAGE FORMS DAILY;
     Route: 065
  2. OLFEN [DICLOFENAC] [Suspect]
     Active Substance: DICLOFENAC
     Indication: MUSCLE CONTRACTURE

REACTIONS (3)
  - Gastritis erosive [Unknown]
  - Abdominal pain upper [Unknown]
  - Epigastric discomfort [Unknown]
